FAERS Safety Report 8221809-2 (Version None)
Quarter: 2012Q1

REPORT INFORMATION
  Report Type: 
  Country: None (occurrence: None)
  Receive Date: 20120320
  Receipt Date: 20120308
  Transmission Date: 20120608
  Serious: Yes (Hospitalization, Other)
  Sender: FDA-Public Use
  Company Number: US-ABBOTT-12P-163-0891942-00

PATIENT
  Age: 76 Year
  Sex: Female

DRUGS (19)
  1. COUMADIN [Concomitant]
     Indication: PRODUCT USED FOR UNKNOWN INDICATION
     Dates: start: 20110101
  2. HUMIRA [Suspect]
     Indication: RHEUMATOID ARTHRITIS
     Route: 058
     Dates: start: 20030101, end: 20050101
  3. POTASSIUM [Concomitant]
     Indication: MINERAL SUPPLEMENTATION
     Dosage: 2 IN AM, 2 IN PM
  4. LANOXIN [Concomitant]
     Indication: PRODUCT USED FOR UNKNOWN INDICATION
     Dosage: 0.125 MG
     Dates: start: 20110101, end: 20120101
  5. MAGNESIUM OXIDE [Concomitant]
     Indication: MINERAL SUPPLEMENTATION
  6. FERROUS SULFATE TAB [Concomitant]
     Indication: MINERAL SUPPLEMENTATION
  7. FOLIC ACID [Concomitant]
     Indication: PRODUCT USED FOR UNKNOWN INDICATION
  8. OMEPRAZOLE [Concomitant]
     Indication: PRODUCT USED FOR UNKNOWN INDICATION
     Dosage: 40 MG DAILY
  9. HUMIRA [Suspect]
  10. PREDNISONE [Concomitant]
     Dosage: 20 MG DAILY
     Dates: start: 20120224, end: 20120227
  11. CALCIUM +VIT D [Concomitant]
     Indication: PRODUCT USED FOR UNKNOWN INDICATION
  12. SYNTHROID [Concomitant]
     Indication: HYPOTHYROIDISM
  13. HUMIRA [Suspect]
     Indication: CROHN'S DISEASE
     Dosage: LOADING DOSE
     Dates: start: 20120125, end: 20120125
  14. PREDNISONE [Concomitant]
     Indication: PRODUCT USED FOR UNKNOWN INDICATION
     Dosage: 20 MG DAILY
     Dates: end: 20120201
  15. PREDNISONE [Concomitant]
     Dosage: 10 MG DAILY
     Dates: start: 20120227
  16. PREDNISONE [Concomitant]
     Dosage: 30 MG DAILY
     Dates: start: 20120201, end: 20120224
  17. VITAMIN B-12 [Concomitant]
     Indication: PRODUCT USED FOR UNKNOWN INDICATION
     Dates: start: 20100101
  18. LANOXIN [Concomitant]
     Dosage: 0.375 MG
     Dates: start: 20120101
  19. TYLENOL PM [Concomitant]
     Indication: PRODUCT USED FOR UNKNOWN INDICATION
     Dosage: AT BEDTIME

REACTIONS (11)
  - GASTROINTESTINAL INFLAMMATION [None]
  - CARDIAC FAILURE CONGESTIVE [None]
  - CYSTITIS [None]
  - INJECTION SITE HAEMATOMA [None]
  - CONSTIPATION [None]
  - ATRIAL FIBRILLATION [None]
  - COLON CANCER [None]
  - CROHN'S DISEASE [None]
  - ASTHENIA [None]
  - GASTROINTESTINAL INFECTION [None]
  - LETHARGY [None]
